FAERS Safety Report 4463378-9 (Version None)
Quarter: 2004Q3

REPORT INFORMATION
  Report Type: 
  Country: None (occurrence: None)
  Receive Date: 20040928
  Receipt Date: 20040915
  Transmission Date: 20050211
  Serious: Yes (Other)
  Sender: FDA-Public Use
  Company Number: A0525802A

PATIENT
  Age: 56 Year
  Sex: Female

DRUGS (2)
  1. LOTRONEX [Suspect]
     Indication: IRRITABLE BOWEL SYNDROME
     Dosage: 1 MG/TWICE PER DAY/ORAL
     Route: 048
     Dates: start: 20030101, end: 20040816
  2. IBUPROFEN [Concomitant]

REACTIONS (1)
  - COLITIS ISCHAEMIC [None]
